FAERS Safety Report 16354975 (Version 1)
Quarter: 2019Q2

REPORT INFORMATION
  Report Type: Report from Study
  Country: None (occurrence: US)
  Receive Date: 20190524
  Receipt Date: 20190524
  Transmission Date: 20190711
  Serious: No
  Sender: FDA-Public Use
  Company Number: US-VIFOR (INTERNATIONAL) INC.-VIT-2019-04030

PATIENT
  Sex: Female
  Weight: 71.8 kg

DRUGS (6)
  1. RENAVITE [Concomitant]
     Active Substance: ASCORBIC ACID\BIOTIN\CALCIUM PANTOTHENATE\CYANOCOBALAMIN\FOLIC ACID\NIACINAMIDE\PYRIDOXINE HYDROCHLORIDE\RIBOFLAVIN\THIAMINE MONONITRATE
  2. VITAMIN D3 [Concomitant]
     Active Substance: CHOLECALCIFEROL
  3. QUETIAPINE. [Concomitant]
     Active Substance: QUETIAPINE
     Dosage: AT BEDTIME
  4. TOPROL XL [Concomitant]
     Active Substance: METOPROLOL SUCCINATE
  5. RENVELA [Concomitant]
     Active Substance: SEVELAMER CARBONATE
     Dosage: 1 PACKET 3 TIMES A DAY
  6. VELTASSA [Suspect]
     Active Substance: PATIROMER
     Indication: DIALYSIS
     Dates: start: 201904

REACTIONS (1)
  - Off label use [Unknown]
